FAERS Safety Report 4747035-7 (Version None)
Quarter: 2005Q3

REPORT INFORMATION
  Report Type: 
  Country: None (occurrence: None)
  Receive Date: 20050815
  Receipt Date: 20050728
  Transmission Date: 20060218
  Serious: Yes (Other)
  Sender: FDA-Public Use
  Company Number: USA0506101255

PATIENT
  Age: 49 Year
  Sex: Male
  Weight: 59 kg

DRUGS (7)
  1. XIGRIS [Suspect]
     Indication: SEPSIS
     Dates: start: 20050616, end: 20050620
  2. XIGRIS [Suspect]
     Indication: SEPSIS
     Dates: start: 20050623, end: 20050628
  3. DOPAMINE [Concomitant]
  4. NOREPINEPHRINE [Concomitant]
  5. EPINEPHRINE [Concomitant]
  6. PHENYLEPHRINE [Concomitant]
  7. EPHEDRINE [Concomitant]

REACTIONS (3)
  - CARDIOVASCULAR DISORDER [None]
  - METABOLIC ACIDOSIS [None]
  - MULTI-ORGAN FAILURE [None]
